FAERS Safety Report 23563946 (Version 1)
Quarter: 2024Q1

REPORT INFORMATION
  Report Type: Spontaneous
  Country: US (occurrence: US)
  Receive Date: 20240226
  Receipt Date: 20240226
  Transmission Date: 20240410
  Serious: No
  Sender: FDA-Public Use
  Company Number: US-JNJFOC-20240266250

PATIENT
  Age: 59 Year
  Sex: Female

DRUGS (8)
  1. MACITENTAN [Suspect]
     Active Substance: MACITENTAN
     Indication: Pulmonary arterial hypertension
     Route: 048
  2. TREPROSTINIL SODIUM [Suspect]
     Active Substance: TREPROSTINIL SODIUM
     Indication: Pulmonary arterial hypertension
     Route: 055
     Dates: start: 20210512
  3. FUROSEMIDE [Concomitant]
     Active Substance: FUROSEMIDE
  4. PANTOPRAZOLE SODIUM [Concomitant]
     Active Substance: PANTOPRAZOLE SODIUM
  5. SILDENAFIL CITRATE [Concomitant]
     Active Substance: SILDENAFIL CITRATE
  6. TYLENOL [Concomitant]
     Active Substance: ACETAMINOPHEN
  7. VITAMIN D3 [Concomitant]
     Active Substance: CHOLECALCIFEROL
  8. CENTRUM [ASCORBIC ACID;BIOTIN;CALCIUM;CALCIUM PANTOTHENATE;COLECALCIFE [Concomitant]

REACTIONS (3)
  - Rash [Unknown]
  - Dry skin [Unknown]
  - Seasonal allergy [Unknown]
